FAERS Safety Report 5738501-6 (Version None)
Quarter: 2008Q2

REPORT INFORMATION
  Report Type: 
  Country: None (occurrence: None)
  Receive Date: 20080515
  Receipt Date: 20080506
  Transmission Date: 20081010
  Serious: Yes (Life-Threatening, Hospitalization)
  Sender: FDA-Public Use
  Company Number: GB-RANBAXY-2008RR-14962

PATIENT

DRUGS (7)
  1. SIMVASTATIN [Suspect]
     Indication: ANGINA PECTORIS
     Dosage: 40 MG, QD
     Route: 048
     Dates: start: 20050101, end: 20050101
  2. SIMVASTATIN [Suspect]
     Indication: BLOOD CHOLESTEROL INCREASED
  3. ASPIRIN [Concomitant]
     Indication: ANGINA PECTORIS
     Dosage: 75 MG, QD
     Route: 065
  4. FUROSEMIDE [Concomitant]
     Indication: HYPERTENSION
     Dosage: 20 MG, QD
     Route: 065
  5. GTN-S [Concomitant]
     Indication: ANGINA PECTORIS
     Dosage: 400 UG, UNK
     Route: 065
  6. IMDUR [Concomitant]
     Indication: ANGINA PECTORIS
     Dosage: 60 MG, QD
     Route: 065
  7. RAMIPRIL [Concomitant]
     Indication: HYPERTENSION
     Dosage: 5 MG, QD
     Route: 065

REACTIONS (1)
  - ACUTE MYOCARDIAL INFARCTION [None]
